FAERS Safety Report 6846271-3 (Version None)
Quarter: 2010Q3

REPORT INFORMATION
  Report Type: 
  Country: None (occurrence: None)
  Receive Date: 20100712
  Receipt Date: 20100629
  Transmission Date: 20110219
  Serious: Yes (Other)
  Sender: FDA-Public Use
  Company Number: 7009672

PATIENT
  Age: 51 Year
  Sex: Female
  Weight: 45 kg

DRUGS (6)
  1. REBIF [Suspect]
     Indication: MULTIPLE SCLEROSIS
     Dosage: 22 MCG, 3 IN 1 WK, SUBCUTANEOUS
     Route: 058
     Dates: start: 20090805, end: 20100401
  2. ALEVE [Suspect]
     Indication: HEADACHE
     Dates: start: 20090801, end: 20100401
  3. EXCEDRIN (MIGRAINE) [Suspect]
     Indication: HEADACHE
     Dates: start: 20090801, end: 20100401
  4. ZETIA [Concomitant]
  5. SYNTHROID [Concomitant]
  6. PREMARIN [Concomitant]

REACTIONS (3)
  - ANAEMIA [None]
  - GASTRIC ULCER HAEMORRHAGE [None]
  - HEADACHE [None]
